FAERS Safety Report 7084535-1 (Version None)
Quarter: 2010Q4

REPORT INFORMATION
  Report Type: 
  Country: None (occurrence: None)
  Receive Date: 20101104
  Receipt Date: 20101029
  Transmission Date: 20110411
  Serious: Yes (Hospitalization)
  Sender: FDA-Public Use
  Company Number: FR-PFIZER INC-2007101875

PATIENT
  Age: 60 Year
  Sex: Female
  Weight: 107 kg

DRUGS (8)
  1. BLINDED *NO SUBJECT DRUG [Suspect]
     Indication: CARDIAC FAILURE
     Dosage: UNK
     Route: 048
     Dates: start: 20070301, end: 20070309
  2. BLINDED *PLACEBO [Suspect]
     Indication: CARDIAC FAILURE
     Dosage: UNK
     Route: 048
     Dates: start: 20070301, end: 20070309
  3. BLINDED EPLERENONE [Suspect]
     Indication: CARDIAC FAILURE
     Dosage: UNK
     Route: 048
     Dates: start: 20070301, end: 20070309
  4. BLINDED *NO SUBJECT DRUG [Suspect]
     Route: 048
     Dates: start: 20070309
  5. BLINDED *PLACEBO [Suspect]
     Route: 048
     Dates: start: 20070309
  6. BLINDED EPLERENONE [Suspect]
     Route: 048
     Dates: start: 20070309
  7. ALLOPURINOL [Concomitant]
     Route: 048
     Dates: start: 20050101
  8. LEVOTHYROXINE SODIUM [Concomitant]
     Route: 048
     Dates: start: 20050101

REACTIONS (2)
  - ENDOCARDITIS [None]
  - RENAL FAILURE [None]
